FAERS Safety Report 21385300 (Version 3)
Quarter: 2024Q3

REPORT INFORMATION
  Report Type: Spontaneous
  Country: ES (occurrence: ES)
  Receive Date: 20220928
  Receipt Date: 20240911
  Transmission Date: 20241016
  Serious: Yes (Other)
  Sender: AUROBINDO
  Company Number: ES-AEMPS-1260903

PATIENT
  Age: 90 Year
  Sex: Female

DRUGS (2)
  1. QUETIAPINE [Suspect]
     Active Substance: QUETIAPINE
     Indication: Product used for unknown indication
     Dosage: 50 MILLIGRAM (1 TOTAL)
     Route: 048
     Dates: start: 20201208, end: 20201208
  2. RISPERIDONE [Suspect]
     Active Substance: RISPERIDONE
     Indication: Product used for unknown indication
     Dosage: 5 MILLIGRAM (1 TOTAL)
     Route: 048
     Dates: start: 20201208, end: 20201208

REACTIONS (3)
  - Depressed level of consciousness [Unknown]
  - Hypotension [Unknown]
  - Wrong dose [Unknown]

NARRATIVE: CASE EVENT DATE: 20201209
